FAERS Safety Report 9764074 (Version 1)
Quarter: 2013Q4

REPORT INFORMATION
  Report Type: Spontaneous
  Country: US (occurrence: US)
  Receive Date: 20131216
  Receipt Date: 20131216
  Transmission Date: 20140711
  Serious: No
  Sender: FDA-Public Use
  Company Number: US-BIOGENIDEC-2013BI110883

PATIENT
  Age: 42 Year
  Sex: Female
  Weight: 102 kg

DRUGS (8)
  1. TECFIDERA [Suspect]
     Indication: PRODUCT USED FOR UNKNOWN INDICATION
     Route: 048
  2. CYMBALTA [Concomitant]
     Indication: PRODUCT USED FOR UNKNOWN INDICATION
  3. SIMVASTATIN [Concomitant]
     Indication: PRODUCT USED FOR UNKNOWN INDICATION
  4. ALBUTEROL AER [Concomitant]
     Indication: PRODUCT USED FOR UNKNOWN INDICATION
  5. IBUPRFN (PRESUME IBUPROFEN) [Concomitant]
     Indication: PRODUCT USED FOR UNKNOWN INDICATION
  6. TYLENOL [Concomitant]
     Indication: PRODUCT USED FOR UNKNOWN INDICATION
  7. HYDROCODONE TAB/HOMATROP [Concomitant]
     Indication: PRODUCT USED FOR UNKNOWN INDICATION
  8. AMOXICILLIN [Concomitant]
     Indication: PRODUCT USED FOR UNKNOWN INDICATION

REACTIONS (4)
  - Tooth extraction [Unknown]
  - Post procedural infection [Unknown]
  - Drug ineffective [Unknown]
  - Procedural pain [Unknown]
